FAERS Safety Report 4457321-6 (Version None)
Quarter: 2004Q3

REPORT INFORMATION
  Report Type: 
  Country: None (occurrence: None)
  Receive Date: 20040921
  Receipt Date: 20040903
  Transmission Date: 20050211
  Serious: Yes (Hospitalization)
  Sender: FDA-Public Use
  Company Number: B0343371A

PATIENT
  Age: 35 Year
  Sex: Male
  Weight: 52.8894 kg

DRUGS (7)
  1. FLOVENT [Suspect]
     Indication: ASTHMA
     Dosage: 200 MCG/TWICE PER DAY/ORAL
     Route: 048
     Dates: start: 20010122, end: 20020803
  2. FLOVENT [Suspect]
     Indication: ASTHMA
     Dosage: 400 MCG/TWICE PER DAY/INHALED
     Route: 055
     Dates: start: 20020803
  3. PREDNISOLONE [Suspect]
     Dates: start: 20010131
  4. THEOPHYLLINE [Concomitant]
  5. MONTELUKAST SODIUM [Concomitant]
  6. PROCATEROL HCL [Concomitant]
  7. SALMETEROL XINAFOATE [Concomitant]

REACTIONS (2)
  - ASTHMA [None]
  - BRONCHOPULMONARY ASPERGILLOSIS ALLERGIC [None]
